FAERS Safety Report 23278676 (Version 1)
Quarter: 2023Q4

REPORT INFORMATION
  Report Type: Spontaneous
  Country: GB (occurrence: ES)
  Receive Date: 20231208
  Receipt Date: 20231208
  Transmission Date: 20240110
  Serious: Yes (Other)
  Sender: FDA-Public Use
  Company Number: ES-CNX THERAPEUTICS-2023CNX001661

PATIENT

DRUGS (1)
  1. LATUDA [Suspect]
     Active Substance: LURASIDONE HYDROCHLORIDE
     Indication: Endocarditis
     Dosage: 1000-1500 MG EVERY 15 DAYS
     Route: 065

REACTIONS (2)
  - Toxic skin eruption [Unknown]
  - Off label use [Unknown]
